FAERS Safety Report 6377064-1 (Version None)
Quarter: 2009Q3

REPORT INFORMATION
  Report Type: 
  Country: None (occurrence: None)
  Receive Date: 20090925
  Receipt Date: 20090917
  Transmission Date: 20100115
  Serious: Yes (Other)
  Sender: FDA-Public Use
  Company Number: NZ-PFIZER INC-2009256546

PATIENT
  Age: 21 Year

DRUGS (1)
  1. DEPO-PROVERA [Suspect]
     Dosage: 150 MG, EVERY 3 MONTHS, IN RIGHT BUTTOCK
     Route: 030
     Dates: start: 20090806

REACTIONS (1)
  - SUBCUTANEOUS ABSCESS [None]
